FAERS Safety Report 15041792 (Version 4)
Quarter: 2018Q4

REPORT INFORMATION
  Report Type: Spontaneous
  Country: US (occurrence: US)
  Receive Date: 20180621
  Receipt Date: 20181118
  Transmission Date: 20190204
  Serious: No
  Sender: FDA-Public Use
  Company Number: US-JNJFOC-20180536492

PATIENT
  Age: 75 Year
  Sex: Female
  Weight: 48.08 kg

DRUGS (6)
  1. WOMENS ROGAINE UNSCENTED [Suspect]
     Active Substance: MINOXIDIL
     Indication: ANDROGENETIC ALOPECIA
     Dosage: 1-2 TIMES
     Route: 061
  2. CALCIUM [Concomitant]
     Active Substance: CALCIUM
     Indication: OSTEOPOROSIS
     Route: 065
  3. WOMENS ROGAINE UNSCENTED [Suspect]
     Active Substance: MINOXIDIL
     Indication: ANDROGENETIC ALOPECIA
     Dosage: CAPFUL
     Route: 061
     Dates: start: 20171217
  4. MULTI VITAMIN [Concomitant]
     Active Substance: VITAMINS
     Indication: ROUTINE HEALTH MAINTENANCE
     Route: 065
  5. WOMENS ROGAINE UNSCENTED [Suspect]
     Active Substance: MINOXIDIL
     Indication: ANDROGENETIC ALOPECIA
     Dosage: CAPFUL
     Route: 061
     Dates: start: 201801
  6. VAGIFEM [Concomitant]
     Active Substance: ESTRADIOL
     Indication: OESTRADIOL ABNORMAL
     Route: 065

REACTIONS (5)
  - Wrong technique in product usage process [Unknown]
  - Overdose [Unknown]
  - Dermatitis contact [Recovered/Resolved]
  - Product physical issue [Unknown]
  - Product storage error [Unknown]

NARRATIVE: CASE EVENT DATE: 201712
